FAERS Safety Report 4730021-0 (Version None)
Quarter: 2005Q3

REPORT INFORMATION
  Report Type: 
  Country: None (occurrence: None)
  Receive Date: 20050801
  Receipt Date: 20050628
  Transmission Date: 20060218
  Serious: Yes (Death, Hospitalization)
  Sender: FDA-Public Use
  Company Number: US-BRISTOL-MYERS SQUIBB COMPANY-13018841

PATIENT
  Age: 64 Year
  Sex: Female
  Weight: 54 kg

DRUGS (3)
  1. CETUXIMAB [Suspect]
     Indication: COLORECTAL CANCER METASTATIC
     Dosage: INITIAL TX DATE: 28-APR-05.
     Route: 042
     Dates: start: 20050616, end: 20050616
  2. CAPECITABINE [Suspect]
     Indication: COLORECTAL CANCER METASTATIC
     Dosage: 2 DAILY ON DAYS 1-14. INITIAL TX DATE: 28-APR-05.
     Route: 048
     Dates: end: 20050626
  3. IRINOTECAN [Suspect]
     Indication: COLORECTAL CANCER METASTATIC
     Dosage: INITIAL TX DATE: 28-APR-05.
     Route: 042
     Dates: start: 20050616, end: 20050616

REACTIONS (13)
  - ABASIA [None]
  - COLITIS ISCHAEMIC [None]
  - HYPOTENSION [None]
  - PANCYTOPENIA [None]
  - PERIPHERAL COLDNESS [None]
  - PNEUMOTHORAX [None]
  - POST PROCEDURAL COMPLICATION [None]
  - PULSE ABSENT [None]
  - RENAL TUBULAR NECROSIS [None]
  - RHABDOMYOLYSIS [None]
  - TACHYCARDIA [None]
  - THROMBOSIS [None]
  - URINE OUTPUT DECREASED [None]
